FAERS Safety Report 4477272-0 (Version None)
Quarter: 2004Q4

REPORT INFORMATION
  Report Type: 
  Country: None (occurrence: None)
  Receive Date: 20041018
  Receipt Date: 20040510
  Transmission Date: 20050328
  Serious: No
  Sender: FDA-Public Use
  Company Number: US-GLAXOSMITHKLINE-A0510199A

PATIENT
  Age: 22 Month
  Sex: Female

DRUGS (3)
  1. CEFTIN [Suspect]
     Indication: OTITIS MEDIA ACUTE
     Dosage: 1TSP TWICE PER DAY
     Route: 048
     Dates: start: 20040508, end: 20040509
  2. TYLENOL [Concomitant]
  3. MOTRIN [Concomitant]

REACTIONS (2)
  - PHARMACEUTICAL PRODUCT COMPLAINT [None]
  - VOMITING [None]
